FAERS Safety Report 5177484-7 (Version None)
Quarter: 2006Q4

REPORT INFORMATION
  Report Type: 
  Country: None (occurrence: None)
  Receive Date: 20061218
  Receipt Date: 20060807
  Transmission Date: 20070319
  Serious: No
  Sender: FDA-Public Use
  Company Number: US-AMGEN-KDL189209

PATIENT
  Sex: Female

DRUGS (2)
  1. ENBREL [Suspect]
     Indication: RHEUMATOID ARTHRITIS
     Route: 058
     Dates: start: 20001201
  2. PLAQUENIL [Concomitant]
     Dates: start: 20060101

REACTIONS (4)
  - DIARRHOEA [None]
  - FLATULENCE [None]
  - HAEMATOCHEZIA [None]
  - VOMITING [None]
